FAERS Safety Report 9272651 (Version 1)
Quarter: 2013Q2

REPORT INFORMATION
  Report Type: Spontaneous
  Country: RO (occurrence: RO)
  Receive Date: 20130506
  Receipt Date: 20130506
  Transmission Date: 20140414
  Serious: Yes (Life-Threatening)
  Sender: FDA-Public Use
  Company Number: RO-ASTRAZENECA-2013SE30779

PATIENT
  Age: 63 Year
  Sex: Female

DRUGS (5)
  1. NEXIUM [Suspect]
     Indication: DUODENAL ULCER
     Route: 042
     Dates: start: 20130414, end: 20130414
  2. METOCLOPRAMID [Suspect]
     Indication: DUODENAL ULCER
     Route: 042
     Dates: start: 20130414, end: 20130414
  3. SIOFOR [Concomitant]
     Indication: DIABETES MELLITUS
     Route: 048
  4. ACTRAPID [Concomitant]
     Indication: HYPERGLYCAEMIA
     Route: 058
     Dates: start: 20130414
  5. SODIUM CHLORIDE [Concomitant]
     Dosage: 9 MG/ML
     Dates: start: 20130414

REACTIONS (3)
  - Eyelid oedema [Recovered/Resolved]
  - Rash maculo-papular [Recovered/Resolved]
  - Lip swelling [Recovered/Resolved]
